FAERS Safety Report 6835346-0 (Version None)
Quarter: 2010Q3

REPORT INFORMATION
  Report Type: 
  Country: None (occurrence: None)
  Receive Date: 20100707
  Receipt Date: 20100625
  Transmission Date: 20110219
  Serious: Yes (Disabling)
  Sender: FDA-Public Use
  Company Number: 2010SP035990

PATIENT
  Age: 57 Year
  Sex: Male

DRUGS (5)
  1. SAPHRIS [Suspect]
     Indication: BIPOLAR DISORDER
     Dosage: 12.5 MG; QD; SL
     Route: 060
     Dates: start: 20100601
  2. WELLBUTRIN [Concomitant]
  3. XANAX [Concomitant]
  4. EFFEXOR [Concomitant]
  5. LEXAPRO [Concomitant]

REACTIONS (4)
  - ANXIETY [None]
  - DEPRESSION [None]
  - NEGATIVE THOUGHTS [None]
  - OBSESSIVE-COMPULSIVE DISORDER [None]
